FAERS Safety Report 8851425 (Version 4)
Quarter: 2013Q1

REPORT INFORMATION
  Report Type: Spontaneous
  Country: US (occurrence: US)
  Receive Date: 20121021
  Receipt Date: 20130125
  Transmission Date: 20140127
  Serious: Yes (Hospitalization, Other)
  Sender: FDA-Public Use
  Company Number: US-009507513-1210USA008889

PATIENT
  Sex: Male

DRUGS (3)
  1. PEGINTRON [Suspect]
     Indication: HEPATITIS C
     Dosage: UNK
     Dates: start: 20121015
  2. RIBAVIRIN [Suspect]
     Indication: HEPATITIS C
     Dosage: UNK
     Route: 048
     Dates: start: 20121015
  3. VICTRELIS [Suspect]
     Indication: HEPATITIS C
     Dosage: UNK
     Route: 048
     Dates: start: 20121112

REACTIONS (13)
  - Aneurysm [Unknown]
  - Connective tissue disorder [Unknown]
  - Musculoskeletal disorder [Unknown]
  - Influenza like illness [Unknown]
  - Headache [Unknown]
  - Chest pain [Unknown]
  - Arthralgia [Unknown]
  - Hypoaesthesia [Unknown]
  - Malaise [Unknown]
  - Nausea [Unknown]
  - Nausea [Unknown]
  - Chest pain [Unknown]
  - Pain in extremity [Unknown]
